FAERS Safety Report 9182662 (Version 1)
Quarter: 2012Q4

REPORT INFORMATION
  Report Type: 
  Country: CH (occurrence: CH)
  Receive Date: 20121031
  Receipt Date: 20121031
  Transmission Date: 20130627
  Serious: Yes (Disabling, Other)
  Sender: FDA-Public Use
  Company Number: CH-RANBAXY-2012RR-59497

PATIENT
  Age: 65 Year
  Sex: Female

DRUGS (2)
  1. ESOMEPRAZOL [Suspect]
     Indication: GASTROOESOPHAGEAL REFLUX DISEASE
     Dosage: 20 mg/day
     Route: 065
  2. PANTOPRAZOL [Suspect]
     Indication: GASTROOESOPHAGEAL REFLUX DISEASE
     Dosage: 20 mg/day
     Route: 065

REACTIONS (2)
  - Vision blurred [Recovered/Resolved]
  - Road traffic accident [Unknown]
